APPROVED DRUG PRODUCT: TOLAZAMIDE
Active Ingredient: TOLAZAMIDE
Strength: 100MG
Dosage Form/Route: TABLET;ORAL
Application: A071355 | Product #001
Applicant: USL PHARMA INC
Approved: Jan 11, 1988 | RLD: No | RS: No | Type: DISCN